FAERS Safety Report 9138769 (Version 1)
Quarter: 2013Q1

REPORT INFORMATION
  Report Type: Spontaneous
  Country: US (occurrence: US)
  Receive Date: 20130305
  Receipt Date: 20130305
  Transmission Date: 20140127
  Serious: Yes (Other)
  Sender: FDA-Public Use
  Company Number: US-ENDO PHARMACEUTICALS INC.-PERC20100088

PATIENT
  Age: 64 Year
  Sex: Female
  Weight: 68.1 kg

DRUGS (5)
  1. PERCOCET [Suspect]
     Indication: PAIN
     Dosage: UNK
     Route: 048
  2. LYRICA [Suspect]
     Indication: FIBROMYALGIA
     Dosage: UNK
     Route: 048
  3. VICODIN [Suspect]
     Indication: PAIN
     Route: 048
  4. VALIUM [Suspect]
     Indication: ARRHYTHMIA
     Route: 048
  5. VALIUM [Suspect]
     Indication: ANXIETY

REACTIONS (28)
  - Ankle fracture [Unknown]
  - Blindness [Not Recovered/Not Resolved]
  - Suicidal ideation [Unknown]
  - Weight increased [Not Recovered/Not Resolved]
  - Local swelling [Unknown]
  - Muscle spasms [Unknown]
  - Muscular weakness [Unknown]
  - Decreased appetite [Unknown]
  - Belligerence [Unknown]
  - Feeling drunk [Unknown]
  - Fall [Unknown]
  - Impaired driving ability [Unknown]
  - Irritability [Unknown]
  - Aggression [Unknown]
  - Psychotic behaviour [Unknown]
  - Hypopnoea [Unknown]
  - Agitation [Unknown]
  - Depression [Unknown]
  - Confusional state [Unknown]
  - Micturition disorder [Not Recovered/Not Resolved]
  - Vision blurred [Unknown]
  - Dizziness [Unknown]
  - Drug ineffective [Unknown]
  - Vomiting [Unknown]
  - Abdominal discomfort [Unknown]
  - Somnolence [Unknown]
  - Tremor [Unknown]
  - Diplopia [Unknown]
